FAERS Safety Report 26147691 (Version 2)
Quarter: 2025Q4

REPORT INFORMATION
  Report Type: Spontaneous
  Country: EU (occurrence: EU)
  Receive Date: 20251211
  Receipt Date: 20251223
  Transmission Date: 20260117
  Serious: Yes (Hospitalization)
  Sender: Haleon PLC
  Company Number: EU-SANDOZ-SDZ2025DE092402

PATIENT
  Sex: Female

DRUGS (10)
  1. DICLOFENAC [Suspect]
     Active Substance: DICLOFENAC
     Indication: Product used for unknown indication
     Dosage: 150 MG, ROA: UNKNOWN
     Dates: start: 20231115, end: 20240115
  2. NAPROXEN [Suspect]
     Active Substance: NAPROXEN
     Indication: Product used for unknown indication
     Dosage: 125 MG, PATIENT ROA: UNKNOWN
  3. NAPROXEN [Suspect]
     Active Substance: NAPROXEN
     Dosage: 125 MG, PATIENT ROA: UNKNOWN
     Dates: start: 20220706, end: 20240101
  4. NAPROXEN [Suspect]
     Active Substance: NAPROXEN
     Dosage: 500 MG, PATIENT ROA: UNKNOWN
  5. IBUPROFEN [Suspect]
     Active Substance: IBUPROFEN
     Indication: Product used for unknown indication
     Dosage: 600 MG, PATIENT ROA: UNKNOWN
     Dates: start: 20220328, end: 20220705
  6. IBUPROFEN [Suspect]
     Active Substance: IBUPROFEN
     Dosage: 600 MG, PATIENT ROA: UNKNOWN
  7. COSENTYX [Suspect]
     Active Substance: SECUKINUMAB
     Indication: Product used for unknown indication
     Dosage: 150 MG, ROUTE: UNKNOWN
     Dates: start: 20211006, end: 20220223
  8. COSENTYX [Suspect]
     Active Substance: SECUKINUMAB
     Dosage: 150 MG, PATIENT ROA: UNKNOWN
  9. COSENTYX [Suspect]
     Active Substance: SECUKINUMAB
     Dosage: 150 MG, PATIENT ROA: UNKNOWN
  10. COSENTYX [Suspect]
     Active Substance: SECUKINUMAB
     Dosage: 150 MG, PATIENT ROA: UNKNOWN

REACTIONS (1)
  - Ovarian germ cell teratoma benign [Unknown]

NARRATIVE: CASE EVENT DATE: 20240919
